FAERS Safety Report 6263094-7 (Version None)
Quarter: 2009Q3

REPORT INFORMATION
  Report Type: 
  Country: None (occurrence: None)
  Receive Date: 20090708
  Receipt Date: 20090708
  Transmission Date: 20100115
  Serious: Yes (Other)
  Sender: FDA-Public Use
  Company Number: None

PATIENT
  Sex: Male
  Weight: 120.2032 kg

DRUGS (2)
  1. ONDANSETRON 8 MG PO [Suspect]
     Indication: GASTROOESOPHAGEAL REFLUX DISEASE
     Dosage: 8MG BID PO
     Route: 048
     Dates: end: 20090625
  2. ONDANSETRON 8 MG PO [Suspect]
     Indication: IRRITABLE BOWEL SYNDROME
     Dosage: 8MG BID PO
     Route: 048
     Dates: end: 20090625

REACTIONS (2)
  - DRUG INEFFECTIVE [None]
  - PRODUCT SUBSTITUTION ISSUE [None]
